FAERS Safety Report 24558040 (Version 1)
Quarter: 2024Q4

REPORT INFORMATION
  Report Type: Spontaneous
  Country: GB (occurrence: GB)
  Receive Date: 20241028
  Receipt Date: 20241028
  Transmission Date: 20250115
  Serious: Yes (Death, Life-Threatening, Other)
  Sender: AMGEN
  Company Number: GB-AMGEN-GBRSP2024212542

PATIENT
  Age: 84 Year
  Sex: Female

DRUGS (1)
  1. ARANESP [Suspect]
     Active Substance: DARBEPOETIN ALFA
     Indication: Adverse drug reaction
     Dosage: ARANESP 50MICROGRAMS/0.5ML FOR INJECTION PFS PK4
     Route: 065

REACTIONS (1)
  - Death [Fatal]
